FAERS Safety Report 25078749 (Version 1)
Quarter: 2025Q1

REPORT INFORMATION
  Report Type: Spontaneous
  Country: US (occurrence: US)
  Receive Date: 20250314
  Receipt Date: 20250314
  Transmission Date: 20250409
  Serious: No
  Sender: ABBVIE
  Company Number: US-TEVA-VS-3303559

PATIENT
  Sex: Female

DRUGS (5)
  1. OXYBUTYNIN [Suspect]
     Active Substance: OXYBUTYNIN
     Indication: Bladder disorder
     Dosage: 5 MG AT NIGHT BY MOUTH
     Route: 048
  2. XELJANZ [Concomitant]
     Active Substance: TOFACITINIB CITRATE
     Indication: Rheumatoid arthritis
     Dosage: 11 MG; TAKES ONCE A DAY BY MOUTH WITH WATER
     Route: 048
  3. TRAMADOL [Concomitant]
     Active Substance: TRAMADOL
     Indication: Pain
     Route: 048
  4. PANTOPRAZOLE [Concomitant]
     Active Substance: PANTOPRAZOLE
     Indication: Gastrooesophageal reflux disease
     Dosage: STARTED TAKING ABOUT 1-2 YEARS, 40 MG ONE A DAY BY MOUTH
     Route: 048
  5. METOPROLOL [Concomitant]
     Active Substance: METOPROLOL
     Indication: Hypertension
     Dosage: STARTED TAKING MAYBE ABOUT 7-8 YEARS AGO, 50 MG EVERY DAY BY MOUTH
     Route: 048

REACTIONS (1)
  - Somnolence [Unknown]
